FAERS Safety Report 8237479-3 (Version None)
Quarter: 2012Q1

REPORT INFORMATION
  Report Type: 
  Country: None (occurrence: None)
  Receive Date: 20120323
  Receipt Date: 20120312
  Transmission Date: 20120608
  Serious: Yes (Hospitalization, Other)
  Sender: FDA-Public Use
  Company Number: 2011PL000150

PATIENT
  Age: 60 Year
  Sex: Female
  Weight: 58.0604 kg

DRUGS (7)
  1. PANTOPRAZOLE [Concomitant]
  2. LIBRAX [Concomitant]
  3. ZOCOR [Concomitant]
  4. PREMARIN [Concomitant]
  5. LOTRONEX [Suspect]
     Indication: IRRITABLE BOWEL SYNDROME
     Dosage: 8 MG;TOTAL
     Dates: start: 20040901, end: 20111003
  6. PRASUGREL [Concomitant]
  7. LEVSIN [Concomitant]

REACTIONS (19)
  - HEPATIC FAILURE [None]
  - LETHARGY [None]
  - DEPRESSED LEVEL OF CONSCIOUSNESS [None]
  - DEEP VEIN THROMBOSIS [None]
  - BLOOD POTASSIUM INCREASED [None]
  - CONDITION AGGRAVATED [None]
  - UNRESPONSIVE TO STIMULI [None]
  - THROMBOCYTOSIS [None]
  - RESPIRATORY FAILURE [None]
  - HYPOTENSION [None]
  - TRANSAMINASES INCREASED [None]
  - ISCHAEMIC HEPATITIS [None]
  - HYPOKALAEMIA [None]
  - INFLAMMATORY BOWEL DISEASE [None]
  - HYPERTENSION [None]
  - BRADYCARDIA [None]
  - CARDIAC ARREST [None]
  - ISCHAEMIC CARDIOMYOPATHY [None]
  - ENCEPHALOPATHY [None]
